FAERS Safety Report 7405098-4 (Version None)
Quarter: 2011Q2

REPORT INFORMATION
  Report Type: 
  Country: None (occurrence: None)
  Receive Date: 20110411
  Receipt Date: 20110404
  Transmission Date: 20111010
  Serious: Yes (Hospitalization)
  Sender: FDA-Public Use
  Company Number: BR-ABBOTT-11P-020-0716580-00

PATIENT
  Sex: Female
  Weight: 89 kg

DRUGS (2)
  1. HUMIRA [Suspect]
     Indication: RHEUMATOID ARTHRITIS
     Route: 058
     Dates: start: 20100701, end: 20110303
  2. SUPREMA [Concomitant]
     Indication: HORMONE REPLACEMENT THERAPY
     Route: 048

REACTIONS (17)
  - GENERAL PHYSICAL HEALTH DETERIORATION [None]
  - LOCALISED OEDEMA [None]
  - PRURITUS [None]
  - ERYTHEMA [None]
  - NECK PAIN [None]
  - SKIN BURNING SENSATION [None]
  - RASH MACULAR [None]
  - SWELLING [None]
  - SKIN EXFOLIATION [None]
  - DRY SKIN [None]
  - SWELLING FACE [None]
  - OEDEMA PERIPHERAL [None]
  - PAIN IN EXTREMITY [None]
  - BLOOD GLUCOSE INCREASED [None]
  - JOINT SWELLING [None]
  - LOCAL SWELLING [None]
  - CHEST PAIN [None]
